FAERS Safety Report 9786595 (Version 3)
Quarter: 2014Q1

REPORT INFORMATION
  Report Type: Spontaneous
  Country: JP (occurrence: JP)
  Receive Date: 20131227
  Receipt Date: 20140225
  Transmission Date: 20141002
  Serious: Yes (Disabling, Congenital Anomaly)
  Sender: FDA-Public Use
  Company Number: JP-PFIZER INC-2013369433

PATIENT
  Sex: Female
  Weight: 3 kg

DRUGS (2)
  1. SOLANAX [Suspect]
     Indication: DEPRESSION
     Dosage: 1 DF, 3X/DAY
     Route: 064
  2. LUVOX [Suspect]
     Indication: DEPRESSION
     Dosage: 1 DF, 3X/DAY
     Route: 064

REACTIONS (2)
  - Maternal exposure during pregnancy [Recovered/Resolved with Sequelae]
  - Potter^s syndrome [Recovered/Resolved with Sequelae]
